FAERS Safety Report 13383970 (Version 1)
Quarter: 2017Q1

REPORT INFORMATION
  Report Type: Spontaneous
  Country: CA (occurrence: CA)
  Receive Date: 20170329
  Receipt Date: 20170329
  Transmission Date: 20170429
  Serious: Yes (Life-Threatening)
  Sender: FDA-Public Use
  Company Number: CA-TEVA-751820ACC

PATIENT
  Age: 60 Year
  Sex: Female
  Weight: 59.02 kg

DRUGS (5)
  1. SINGULAIR [Concomitant]
     Active Substance: MONTELUKAST SODIUM
  2. BENADRYL [Concomitant]
     Active Substance: DIPHENHYDRAMINE HYDROCHLORIDE
  3. PREGABALIN. [Concomitant]
     Active Substance: PREGABALIN
  4. EPINEPHRINE. [Concomitant]
     Active Substance: EPINEPHRINE
  5. BUTALBITAL, ASPIRIN, AND CAFFEINE [Suspect]
     Active Substance: ASPIRIN\BUTALBITAL\CAFFEINE
     Indication: MIGRAINE
     Route: 065

REACTIONS (5)
  - Pharyngeal oedema [Unknown]
  - Rash [Unknown]
  - Urticaria [Unknown]
  - Dyspnoea [Unknown]
  - Product substitution issue [Unknown]
